FAERS Safety Report 25047269 (Version 2)
Quarter: 2025Q2

REPORT INFORMATION
  Report Type: Spontaneous
  Country: GB (occurrence: GB)
  Receive Date: 20250306
  Receipt Date: 20250401
  Transmission Date: 20250717
  Serious: Yes (Other)
  Sender: JUBILANT
  Company Number: None

PATIENT
  Age: 71 Year
  Sex: Male
  Weight: 73 kg

DRUGS (2)
  1. DONEPEZIL HYDROCHLORIDE [Suspect]
     Active Substance: DONEPEZIL HYDROCHLORIDE
     Indication: Amnesia
     Dosage: 10 MG, ONCE PER DAY. AT NIGHT
     Dates: start: 20250216
  2. ATORVASTATIN [Concomitant]
     Active Substance: ATORVASTATIN
     Indication: Blood cholesterol increased
     Route: 065
     Dates: start: 20220601

REACTIONS (1)
  - Muscle spasms [Recovering/Resolving]

NARRATIVE: CASE EVENT DATE: 20250225
